FAERS Safety Report 9035185 (Version 1)
Quarter: 2013Q1

REPORT INFORMATION
  Report Type: Report from Study
  Country: US (occurrence: US)
  Receive Date: 20130129
  Receipt Date: 20130129
  Transmission Date: 20140127
  Serious: No
  Sender: FDA-Public Use
  Company Number: US-ABBOTT-12P-163-0898043-00

PATIENT
  Age: 50 Year
  Sex: Female

DRUGS (11)
  1. HUMIRA 40 MG/0.8 ML PEN [Suspect]
     Indication: CROHN^S DISEASE
     Dates: start: 20111223
  2. QUESTRAN [Concomitant]
     Indication: ILL-DEFINED DISORDER
     Dosage: 1-2 PACKETS DAILY
  3. NORVASC [Concomitant]
     Indication: HYPERTENSION
     Dosage: EVERY DAY
  4. RESTORIL [Concomitant]
     Indication: DRUG THERAPY
     Dosage: AT HOUR OF SLEEP
  5. ELAVIL [Concomitant]
     Indication: DRUG THERAPY
     Dosage: AT BEDTIME
  6. ELAVIL [Concomitant]
     Indication: RAYNAUD^S PHENOMENON
  7. PROMETHAZINE [Concomitant]
     Indication: ILL-DEFINED DISORDER
  8. XANAX [Concomitant]
     Indication: ANXIETY
     Dosage: WILL BEGIN TO TAPER SINCE ON HUMIRA PEN
  9. PREMARIN [Concomitant]
     Indication: HORMONE REPLACEMENT THERAPY
     Dosage: EVERY DAY
  10. CYMBALTA [Concomitant]
     Indication: DEPRESSION
     Dosage: EVERY DAY
  11. WELLBUTRIN XL [Concomitant]
     Indication: DEPRESSION
     Dosage: EVERY DAY

REACTIONS (1)
  - Injection site pain [Recovered/Resolved]
